FAERS Safety Report 16606993 (Version 1)
Quarter: 2019Q3

REPORT INFORMATION
  Report Type: Spontaneous
  Country: DE (occurrence: DE)
  Receive Date: 20190722
  Receipt Date: 20190722
  Transmission Date: 20191004
  Serious: Yes (Hospitalization)
  Sender: FDA-Public Use
  Company Number: DE-TEVA-2019-DE-1079954

PATIENT
  Age: 66 Year
  Sex: Female

DRUGS (8)
  1. TRIMIPRAMINE [Concomitant]
     Active Substance: TRIMIPRAMINE
     Dosage: NK MG, NK
  2. PANTOPRAZOL [Concomitant]
     Active Substance: PANTOPRAZOLE SODIUM
     Dosage: NK MG, NK
  3. ACTRAPID [Concomitant]
     Active Substance: INSULIN HUMAN
     Dosage: NK MG, NK
  4. RAMIPRIL. [Concomitant]
     Active Substance: RAMIPRIL
     Dosage: NK MG, NK
  5. METOPROLOL. [Suspect]
     Active Substance: METOPROLOL
     Dosage: 95 MG, 1-0-0.5-0 WAS DISCONTINUED BY THE PULMOLOGIST
     Route: 065
  6. AMLODIPINE [Concomitant]
     Active Substance: AMLODIPINE BESYLATE
     Dosage: NK MG, NK
  7. HYDROCHLOROTHIAZID [Concomitant]
     Active Substance: HYDROCHLOROTHIAZIDE
     Dosage: NK MG, NK
  8. METFORMIN [Concomitant]
     Active Substance: METFORMIN HYDROCHLORIDE
     Dosage: NK MG, NK

REACTIONS (4)
  - Hypertension [Unknown]
  - Palpitations [Unknown]
  - Tachycardia [Unknown]
  - Product prescribing error [Unknown]
